FAERS Safety Report 21176029 (Version 4)
Quarter: 2022Q3

REPORT INFORMATION
  Report Type: Spontaneous
  Country: GB (occurrence: GB)
  Receive Date: 20220805
  Receipt Date: 20220906
  Transmission Date: 20221026
  Serious: Yes (Other)
  Sender: FDA-Public Use
  Company Number: GB-HAMELN-2022HAM000291

PATIENT
  Age: 40 Year
  Sex: Male

DRUGS (6)
  1. FENTANYL [Suspect]
     Active Substance: FENTANYL
     Indication: Sedation
     Dosage: UNK, 50 MCG DILUTED IN 10 ML
     Route: 042
  2. FENTANYL [Suspect]
     Active Substance: FENTANYL
     Dosage: 50 MICROGRAM (50 MCG SECOND DOSE  )
     Route: 042
  3. MIDAZOLAM [Suspect]
     Active Substance: MIDAZOLAM
     Indication: Sedation
     Dosage: 1 MILLIGRAM
     Route: 042
  4. MIDAZOLAM [Suspect]
     Active Substance: MIDAZOLAM
     Indication: Anxiety
     Dosage: UNK
     Route: 065
  5. PROPOFOL [Suspect]
     Active Substance: PROPOFOL
     Indication: Sedation
     Dosage: 50 MILLIGRAM, 50 MG DILUTED TO 10 ML
     Route: 042
  6. PROPOFOL [Suspect]
     Active Substance: PROPOFOL
     Dosage: 50 MILLIGRAM (50 MG SECOND DOSE  )
     Route: 042

REACTIONS (3)
  - Cardiac arrest [Unknown]
  - Injection site pain [Unknown]
  - Product use in unapproved indication [Unknown]
